FAERS Safety Report 17237715 (Version 3)
Quarter: 2020Q2

REPORT INFORMATION
  Report Type: Report from Study
  Country: AT (occurrence: AT)
  Receive Date: 20200106
  Receipt Date: 20200615
  Transmission Date: 20200713
  Serious: Yes (Death, Hospitalization)
  Sender: FDA-Public Use
  Company Number: AT-BAYER-2019-216135

PATIENT
  Age: 62 Year
  Sex: Male

DRUGS (11)
  1. STIVARGA [Suspect]
     Active Substance: REGORAFENIB
     Indication: HEPATOCELLULAR CARCINOMA
     Dosage: 120 MG, QD
     Dates: start: 20190908, end: 20191123
  2. XGEVA [Concomitant]
     Active Substance: DENOSUMAB
     Dosage: 120 MG, ONCE
     Dates: start: 20190322
  3. TRAMAL RETARD [Concomitant]
     Active Substance: TRAMADOL
     Dosage: 100 MG, PRN
     Dates: start: 20190917, end: 20191129
  4. DUROTIV [Concomitant]
     Active Substance: ESOMEPRAZOLE
     Dosage: 20 MG, QD
     Dates: start: 20181217, end: 20191129
  5. NOVALGIN (METAMIZOLE SODIUM) [Concomitant]
     Active Substance: METAMIZOLE SODIUM
     Dosage: 500 MG, TID
     Dates: start: 20190917, end: 20191129
  6. XGEVA [Concomitant]
     Active Substance: DENOSUMAB
     Dosage: 120 MG, ONCE
     Dates: start: 20190222, end: 20190222
  7. LOVENOX [Concomitant]
     Active Substance: ENOXAPARIN SODIUM
     Dosage: 40 MG, QD
     Dates: start: 20190217, end: 20191129
  8. DEFLAMAT [DICLOFENAC SODIUM] [Concomitant]
     Dosage: 75 MG, PRN
     Dates: start: 20181217, end: 20190916
  9. ZOLDEM [Concomitant]
     Active Substance: ZOLPIDEM TARTRATE
     Dosage: 10 MG, QD
     Dates: start: 20190101, end: 20191129
  10. MAGNESIUM [Concomitant]
     Active Substance: MAGNESIUM
     Dosage: 60 MG, QD
     Dates: start: 20191015, end: 20191129
  11. VITAMINS WITH MINERALS [Concomitant]
     Active Substance: MINERALS\VITAMINS
     Dosage: 600 MG, QD
     Dates: start: 20191015, end: 20191129

REACTIONS (1)
  - Myocardial infarction [Fatal]

NARRATIVE: CASE EVENT DATE: 20191125
